FAERS Safety Report 10882960 (Version 1)
Quarter: 2015Q1

REPORT INFORMATION
  Report Type: Spontaneous
  Country: US (occurrence: None)
  Receive Date: 20150226
  Receipt Date: 20150226
  Transmission Date: 20150721
  Serious: Yes (Life-Threatening)
  Sender: FDA-Public Use
  Company Number: None

PATIENT
  Age: 56 Year
  Sex: Female
  Weight: 81.65 kg

DRUGS (1)
  1. PRISTIQ EXTENDED RELEASE [Suspect]
     Active Substance: DESVENLAFAXINE SUCCINATE
     Indication: MAJOR DEPRESSION
     Dosage: 1
     Route: 048
     Dates: start: 20090225, end: 20150225

REACTIONS (10)
  - Fatigue [None]
  - Crying [None]
  - Suicidal ideation [None]
  - Nausea [None]
  - Drug ineffective [None]
  - Gastrointestinal disorder [None]
  - Headache [None]
  - Drug withdrawal syndrome [None]
  - Paraesthesia [None]
  - Eye movement disorder [None]

NARRATIVE: CASE EVENT DATE: 20150225
